FAERS Safety Report 7130990-8 (Version None)
Quarter: 2010Q4

REPORT INFORMATION
  Report Type: 
  Country: None (occurrence: None)
  Receive Date: 20101201
  Receipt Date: 20101123
  Transmission Date: 20110411
  Serious: Yes (Death)
  Sender: FDA-Public Use
  Company Number: A0896837A

PATIENT
  Sex: Female

DRUGS (1)
  1. ZIAGEN [Suspect]

REACTIONS (1)
  - DEATH [None]
